FAERS Safety Report 7817105-5 (Version None)
Quarter: 2011Q4

REPORT INFORMATION
  Report Type: 
  Country: None (occurrence: None)
  Receive Date: 20111014
  Receipt Date: 20111014
  Transmission Date: 20120403
  Serious: No
  Sender: FDA-Public Use
  Company Number: None

PATIENT
  Age: 42 Year
  Sex: Male
  Weight: 92.9874 kg

DRUGS (1)
  1. NORTRIPTYLINE HCL [Suspect]
     Dosage: 9-1-92 -  9-3

REACTIONS (3)
  - HAEMORRHAGE [None]
  - NIGHTMARE [None]
  - PAIN IN EXTREMITY [None]
